FAERS Safety Report 16154212 (Version 2)
Quarter: 2019Q2

REPORT INFORMATION
  Report Type: Spontaneous
  Country: US (occurrence: US)
  Receive Date: 20190403
  Receipt Date: 20190409
  Transmission Date: 20190711
  Serious: Yes (Other)
  Sender: FDA-Public Use
  Company Number: US-DRREDDYS-USA/USA/19/0109166

PATIENT
  Age: 59 Year
  Sex: Female

DRUGS (1)
  1. RANITIDINE. [Suspect]
     Active Substance: RANITIDINE
     Indication: ABDOMINAL PAIN UPPER
     Route: 065

REACTIONS (1)
  - Autoimmune hepatitis [Recovered/Resolved]
